FAERS Safety Report 9624226 (Version 2)
Quarter: 2013Q4

REPORT INFORMATION
  Report Type: Spontaneous
  Country: BR (occurrence: BR)
  Receive Date: 20131015
  Receipt Date: 20131230
  Transmission Date: 20140711
  Serious: Yes (Death, Hospitalization)
  Sender: FDA-Public Use
  Company Number: BR-BRISTOL-MYERS SQUIBB COMPANY-19559921

PATIENT
  Sex: Male
  Weight: 90 kg

DRUGS (1)
  1. YERVOY [Suspect]

REACTIONS (1)
  - Malignant neoplasm progression [Fatal]
